FAERS Safety Report 20583124 (Version 1)
Quarter: 2022Q1

REPORT INFORMATION
  Report Type: Spontaneous
  Country: IT (occurrence: IT)
  Receive Date: 20220311
  Receipt Date: 20220311
  Transmission Date: 20220423
  Serious: Yes (Other)
  Sender: FDA-Public Use
  Company Number: IT-PFIZERINC-2013212097

PATIENT
  Age: 4 Month
  Sex: Male

DRUGS (5)
  1. ETOPOSIDE [Suspect]
     Active Substance: ETOPOSIDE
     Indication: Astrocytoma, low grade
     Dosage: RECEIVED 1 CYCLE WITH CARBOPLATIN
  2. CARBOPLATIN [Suspect]
     Active Substance: CARBOPLATIN
     Indication: Glioma
     Dosage: UNK
  3. CARBOPLATIN [Suspect]
     Active Substance: CARBOPLATIN
     Indication: Astrocytoma, low grade
     Dosage: UNK, 2 DOSES, RECEIVED 1 CYCLE WITH ETOPOSIDE AND 2 DOSES IN SIOP LGG-2004 PROTOCOL
  4. VINCRISTINE [Suspect]
     Active Substance: VINCRISTINE
     Indication: Astrocytoma, low grade
     Dosage: UNK, 2 DOSES, RECEIVED 2 DOSES IN SIOP LGG-2004 PROTOCOL
  5. DESMOPRESSIN [Concomitant]
     Active Substance: DESMOPRESSIN
     Indication: Diabetes insipidus
     Dosage: UNK

REACTIONS (2)
  - Ileus paralytic [Unknown]
  - Haematotoxicity [Unknown]
